FAERS Safety Report 9350465 (Version 1)
Quarter: 2013Q2

REPORT INFORMATION
  Report Type: Spontaneous
  Country: HK (occurrence: HK)
  Receive Date: 20130617
  Receipt Date: 20130617
  Transmission Date: 20140414
  Serious: Yes (Death, Other)
  Sender: FDA-Public Use
  Company Number: HK-JNJFOC-20130602758

PATIENT
  Age: 31 Year
  Sex: Female

DRUGS (5)
  1. ITRACONAZOLE [Suspect]
     Indication: ANTIFUNGAL PROPHYLAXIS
     Route: 042
  2. AMPHOTERICIN B [Suspect]
     Indication: FUSARIUM INFECTION
     Route: 065
  3. VORICONAZOLE [Suspect]
     Indication: FUSARIUM INFECTION
     Route: 042
  4. CASPOFUNGIN [Suspect]
     Indication: FUSARIUM INFECTION
     Route: 065
  5. GRANULOCYTE-MACROPHAGE COLONY-STIMULATING FACTOR [Concomitant]
     Indication: NEUTROPENIA

REACTIONS (2)
  - Fusarium infection [Unknown]
  - Graft versus host disease [Fatal]
